FAERS Safety Report 19081929 (Version 7)
Quarter: 2023Q1

REPORT INFORMATION
  Report Type: Spontaneous
  Country: ES (occurrence: ES)
  Receive Date: 20210401
  Receipt Date: 20230306
  Transmission Date: 20230417
  Serious: Yes (Other)
  Sender: FDA-Public Use
  Company Number: ES-CUBIST PHARMACEUTICALS, INC.-2013CBST001312

PATIENT
  Age: 66 Year
  Sex: Female

DRUGS (36)
  1. ZOCOR [Interacting]
     Active Substance: SIMVASTATIN
     Indication: Product used for unknown indication
     Dosage: 20 MG, QD (1X/DAY)
     Route: 048
     Dates: start: 2012, end: 20130627
  2. SIMVASTATIN [Interacting]
     Active Substance: SIMVASTATIN
     Indication: Product used for unknown indication
     Dosage: 20 MG, QD (1X/DAY)
     Route: 048
     Dates: start: 2012, end: 20130627
  3. CUBICIN [Interacting]
     Active Substance: DAPTOMYCIN
     Indication: Device related infection
     Dosage: 800 MG, DAILY
     Route: 065
     Dates: start: 20130912, end: 20130924
  4. CUBICIN [Interacting]
     Active Substance: DAPTOMYCIN
     Indication: Off label use
     Dosage: 1200 MG, QD (600 MG, 2X/DAY)
     Route: 065
     Dates: start: 20130524, end: 20130701
  5. CUBICIN [Interacting]
     Active Substance: DAPTOMYCIN
     Dosage: UNK
     Route: 065
  6. CUBICIN [Interacting]
     Active Substance: DAPTOMYCIN
     Dosage: 4800 MG, QD (2400 MG, 2X/DAY)
     Route: 065
     Dates: start: 20130524, end: 20130601
  7. CUBICIN [Interacting]
     Active Substance: DAPTOMYCIN
     Dosage: 210000 MILLIGRAM
  8. CUBICIN [Interacting]
     Active Substance: DAPTOMYCIN
     Dosage: 1200 MG, BID
     Route: 065
  9. DAPTOMYCIN [Interacting]
     Active Substance: DAPTOMYCIN
     Indication: Device related infection
     Dosage: 600 MILLIGRAM, BID
     Route: 065
     Dates: start: 20130524, end: 20130701
  10. DAPTOMYCIN [Interacting]
     Active Substance: DAPTOMYCIN
     Indication: Off label use
     Dosage: 800MG, DAILY
     Route: 065
     Dates: start: 20130912, end: 20130924
  11. DAPTOMYCIN [Interacting]
     Active Substance: DAPTOMYCIN
     Dosage: 2400 MILLIGRAM, BID
     Route: 065
     Dates: start: 20130524, end: 20130701
  12. ATORVASTATIN CALCIUM [Interacting]
     Active Substance: ATORVASTATIN CALCIUM
     Indication: Product used for unknown indication
     Dosage: 40 MG, QD (1X/DAY)
     Route: 048
     Dates: start: 2012
  13. ENALAPRIL MALEATE [Concomitant]
     Active Substance: ENALAPRIL MALEATE
     Indication: Product used for unknown indication
     Dosage: UNK
     Route: 048
  14. TRAMADOL HYDROCHLORIDE [Concomitant]
     Active Substance: TRAMADOL HYDROCHLORIDE
     Indication: Product used for unknown indication
     Dosage: UNK
     Route: 048
  15. TRAMADOL HYDROCHLORIDE [Concomitant]
     Active Substance: TRAMADOL HYDROCHLORIDE
     Dosage: UNK
     Route: 065
  16. FOLIC ACID [Concomitant]
     Active Substance: FOLIC ACID
     Indication: Product used for unknown indication
     Dosage: UNK
     Route: 065
  17. DICLOFENAC [Concomitant]
     Active Substance: DICLOFENAC
     Indication: Product used for unknown indication
     Dosage: UNK
     Route: 065
  18. ACETAMINOPHEN [Concomitant]
     Active Substance: ACETAMINOPHEN
     Indication: Product used for unknown indication
     Dosage: UNK
     Route: 065
  19. LORAZEPAM [Concomitant]
     Active Substance: LORAZEPAM
     Indication: Product used for unknown indication
     Dosage: UNK
     Route: 065
  20. DULOXETINE HYDROCHLORIDE [Concomitant]
     Active Substance: DULOXETINE HYDROCHLORIDE
     Indication: Product used for unknown indication
     Dosage: UNK
     Route: 065
  21. MODURETIC 5-50 [Concomitant]
     Active Substance: AMILORIDE HYDROCHLORIDE\HYDROCHLOROTHIAZIDE
     Indication: Product used for unknown indication
     Dosage: UNK
     Route: 065
  22. FLURAZEPAM HYDROCHLORIDE [Concomitant]
     Active Substance: FLURAZEPAM HYDROCHLORIDE
     Indication: Product used for unknown indication
     Dosage: 30 CAPSULES
     Route: 048
  23. FLURAZEPAM HYDROCHLORIDE [Concomitant]
     Active Substance: FLURAZEPAM HYDROCHLORIDE
     Dosage: 30 DOSAGE FORM
     Route: 048
  24. FLURAZEPAM HYDROCHLORIDE [Concomitant]
     Active Substance: FLURAZEPAM HYDROCHLORIDE
     Dosage: UNK
     Route: 065
  25. NOLOTIL [METAMIZOLE MAGNESIUM]METAMIZOLE [Concomitant]
     Indication: Product used for unknown indication
     Dosage: 10 CAPSULES
     Route: 048
  26. NOLOTIL [METAMIZOLE MAGNESIUM]METAMIZOLE [Concomitant]
     Dosage: 10 DOSAGE FORM
     Route: 048
  27. NOLOTIL [METAMIZOLE MAGNESIUM]METAMIZOLE [Concomitant]
     Dosage: UNK
     Route: 065
  28. FERROUS SULFATE [Concomitant]
     Active Substance: FERROUS SULFATE
     Indication: Product used for unknown indication
     Dosage: UNK
     Route: 065
  29. POLARAMINE [Concomitant]
     Active Substance: DEXCHLORPHENIRAMINE MALEATE
     Indication: Product used for unknown indication
     Dosage: UNK
     Route: 065
  30. AMILORIDE HYDROCHLORIDE\HYDROCHLOROTHIAZIDE [Concomitant]
     Active Substance: AMILORIDE HYDROCHLORIDE\HYDROCHLOROTHIAZIDE
     Indication: Product used for unknown indication
     Dosage: UNK
     Route: 065
  31. OMEPRAZOLE [Concomitant]
     Active Substance: OMEPRAZOLE
     Indication: Product used for unknown indication
     Dosage: 20 MG, QD (1X/DAY)
     Route: 048
  32. ACETAMINOPHEN [Concomitant]
     Active Substance: ACETAMINOPHEN
     Indication: Product used for unknown indication
     Dosage: UNK
     Route: 048
  33. ACETAMINOPHEN [Concomitant]
     Active Substance: ACETAMINOPHEN
     Dosage: UNK UNK, UNK
     Route: 065
  34. METAMIZOLE MAGNESIUM [Concomitant]
     Active Substance: METAMIZOLE MAGNESIUM
     Indication: Product used for unknown indication
     Dosage: UNK
     Route: 065
  35. DEXCHLORPHENIRAMINE MALEATE [Concomitant]
     Active Substance: DEXCHLORPHENIRAMINE MALEATE
     Indication: Product used for unknown indication
     Dosage: UNK
     Route: 065
  36. FERROUS SULFATE [Concomitant]
     Active Substance: FERROUS SULFATE
     Indication: Product used for unknown indication
     Dosage: UNK
     Route: 065

REACTIONS (2)
  - Drug interaction [Recovered/Resolved]
  - Myopathy [Recovered/Resolved]

NARRATIVE: CASE EVENT DATE: 20130627
